FAERS Safety Report 8249581-0 (Version None)
Quarter: 2012Q2

REPORT INFORMATION
  Report Type: 
  Country: None (occurrence: None)
  Receive Date: 20120402
  Receipt Date: 20120326
  Transmission Date: 20120825
  Serious: Yes (Other)
  Sender: FDA-Public Use
  Company Number: FR-ASTELLAS-2012EU002422

PATIENT
  Sex: Female

DRUGS (1)
  1. PROTOPIC [Suspect]
     Indication: LICHEN PLANUS
     Dosage: 0.1 %, UNKNOWN/D
     Route: 061
     Dates: start: 20090101, end: 20120301

REACTIONS (3)
  - B-CELL LYMPHOMA [None]
  - MEDICATION ERROR [None]
  - OFF LABEL USE [None]
